FAERS Safety Report 14331117 (Version 1)
Quarter: 2017Q4

REPORT INFORMATION
  Report Type: Spontaneous
  Country: FR (occurrence: FR)
  Receive Date: 20171228
  Receipt Date: 20171228
  Transmission Date: 20180321
  Serious: Yes (Hospitalization)
  Sender: FDA-Public Use
  Company Number: FR-CIPLA LTD.-2017FR25133

PATIENT

DRUGS (10)
  1. RIFADINE 300 MG, GELULE [Suspect]
     Active Substance: RIFAMPIN
     Indication: MEDICAL DEVICE SITE INFECTION
     Dosage: 600 MG, DAILY
     Route: 048
     Dates: start: 20170609
  2. PARACETAMOL [Concomitant]
     Active Substance: ACETAMINOPHEN
     Dosage: UNK
     Route: 065
  3. LOSARTAN POTASSIQUE [Concomitant]
     Active Substance: LOSARTAN POTASSIUM
     Dosage: UNK
     Route: 065
  4. TARGOCID [Suspect]
     Active Substance: TEICOPLANIN
     Indication: MEDICAL DEVICE SITE INFECTION
     Dosage: 1000 MG, DAILY
     Route: 041
     Dates: start: 20170609, end: 20170619
  5. LIPANTHYL 67 MICRONISE, GELULE [Concomitant]
     Dosage: UNK
     Route: 065
  6. ZYLORIC [Concomitant]
     Active Substance: ALLOPURINOL
     Dosage: UNK
     Route: 065
  7. PANTOPRAZOLE [Concomitant]
     Active Substance: PANTOPRAZOLE
     Dosage: UNK
     Route: 065
  8. LEVOFLOXACIN. [Suspect]
     Active Substance: LEVOFLOXACIN
     Indication: MEDICAL DEVICE SITE INFECTION
     Dosage: 500 MG, DAILY
     Route: 048
     Dates: start: 20170609, end: 20170610
  9. LERCAN 20 MG, COMPRIME PELLICULE [Concomitant]
     Dosage: UNK
     Route: 065
  10. KARDEGIC 75 MG, POUDRE POUR SOLUTION BUVABLE EN SACHET-DOSE [Concomitant]
     Dosage: UNK
     Route: 065

REACTIONS (1)
  - Bacterial diarrhoea [Recovered/Resolved]

NARRATIVE: CASE EVENT DATE: 20170610
